FAERS Safety Report 9940480 (Version 2)
Quarter: 2014Q1

REPORT INFORMATION
  Report Type: Report from Study
  Country: KR (occurrence: KR)
  Receive Date: 20140303
  Receipt Date: 20140303
  Transmission Date: 20141002
  Serious: Yes (Death, Other)
  Sender: FDA-Public Use
  Company Number: KR-MPIJNJ-2011-06761

PATIENT
  Sex: 0

DRUGS (43)
  1. VELCADE [Suspect]
     Indication: PLASMA CELL MYELOMA
     Dosage: 1.3 MG/M2, UNK
     Route: 042
     Dates: start: 20111115, end: 20111118
  2. VELCADE [Suspect]
     Dosage: 1.3 MG/M2, UNK
     Route: 042
     Dates: start: 20111206, end: 20111206
  3. MELPHALAN [Suspect]
     Indication: PLASMA CELL MYELOMA
     Dosage: 4.5 MG/M2, UNK
     Route: 048
     Dates: start: 20111115, end: 20111115
  4. MELPHALAN [Suspect]
     Dosage: 4.2 MG/M2, UNK
     Route: 048
     Dates: start: 20111116, end: 20111118
  5. PREDNISOLONE [Suspect]
     Indication: PLASMA CELL MYELOMA
     Dosage: 60 MG/M2, UNK
     Route: 048
     Dates: start: 20111115, end: 20111118
  6. SODIUM CHLORIDE [Concomitant]
     Dosage: 1 L, UNK
     Route: 042
     Dates: start: 20111115, end: 20111118
  7. SODIUM CHLORIDE [Concomitant]
     Dosage: 1 L, UNK
     Route: 042
     Dates: start: 20111119, end: 20111121
  8. POTASSIUM CHLORIDE [Concomitant]
     Dosage: UNK
     Dates: start: 20111115, end: 20111118
  9. POTASSIUM CHLORIDE [Concomitant]
     Dates: start: 20111119, end: 20111121
  10. LASIX                              /00032601/ [Concomitant]
     Indication: NEPHROPATHY
     Dosage: 20 MG, UNK
     Route: 042
     Dates: start: 20111119, end: 20111210
  11. DEXTROSE [Concomitant]
     Dosage: 1 L, UNK
     Dates: start: 20111121, end: 20111122
  12. DEXTROSE [Concomitant]
     Dosage: 1 L, UNK
     Dates: start: 20111123, end: 20111125
  13. DEXTROSE [Concomitant]
     Dosage: 1 UNK, UNK
     Dates: start: 20111125, end: 20111126
  14. NUTRITIONAL SUPPLEMENT [Concomitant]
     Dosage: UNK
     Dates: start: 20111115, end: 20111119
  15. CEFTRIAXONE [Concomitant]
     Indication: INFECTION PROPHYLAXIS
     Dosage: 1 G, UNK
     Route: 042
     Dates: start: 20111115, end: 20111115
  16. METOCLOPRAMIDE [Concomitant]
     Indication: PROPHYLAXIS
     Dosage: UNK
     Dates: start: 20111115, end: 20111118
  17. GRANISETRON [Concomitant]
     Indication: PROPHYLAXIS
     Dosage: UNK
     Dates: start: 20111115, end: 20111115
  18. NORVASC [Concomitant]
     Indication: HYPERTENSION
     Dosage: 5 MG, UNK
     Dates: start: 20111115, end: 20111127
  19. OXYCODONE [Concomitant]
     Indication: BACK PAIN
     Dosage: UNK
     Dates: start: 20111115
  20. ULCERMIN [Concomitant]
     Indication: PROPHYLAXIS
     Dosage: 15 ML, UNK
     Dates: start: 20111115, end: 20111122
  21. CANESTEN ORAL [Concomitant]
     Indication: PROPHYLAXIS
     Dosage: UNK
     Dates: start: 20111115, end: 20111122
  22. BENOCTEN [Concomitant]
     Dosage: UNK
     Dates: start: 20111115, end: 20111115
  23. MEGACE [Concomitant]
     Indication: INCREASED APPETITE
     Dosage: UNK
     Dates: start: 20111115, end: 20111121
  24. ONDANSETRON [Concomitant]
     Indication: PROPHYLAXIS
     Dosage: 8 MG, UNK
  25. DUPHALAC                           /00163401/ [Concomitant]
     Indication: CONSTIPATION
     Dosage: UNK
     Dates: start: 20111117, end: 20111121
  26. ZOMETA [Concomitant]
     Indication: PLASMA CELL MYELOMA
     Dosage: UNK
     Dates: start: 20111122
  27. PANTOLOC                           /01263201/ [Concomitant]
     Dosage: 40 MG, UNK
     Dates: start: 20111123, end: 20111211
  28. MORPHINE SULPHATE [Concomitant]
     Indication: ANALGESIC THERAPY
     Dosage: UNK
     Dates: start: 20111123, end: 20111126
  29. HARNAL [Concomitant]
     Indication: NEPHROPATHY
     Dosage: 0.2 MG, UNK
     Dates: start: 20111123, end: 20111209
  30. MAGNESIUM OXIDE [Concomitant]
     Indication: CONSTIPATION
     Dosage: 250 MG, UNK
     Dates: start: 20111127
  31. ARESTAL                            /00384303/ [Concomitant]
     Indication: DIARRHOEA
     Dosage: UNK
     Dates: start: 20111204
  32. ALBUMIN [Concomitant]
  33. ZIPAN                              /00033002/ [Concomitant]
     Indication: ANALGESIC THERAPY
     Dosage: UNK
     Dates: start: 20111204, end: 20111206
  34. CEFAZOLIN [Concomitant]
     Indication: INFECTION PROPHYLAXIS
     Dosage: 1 G, UNK
     Dates: start: 20111204, end: 20111206
  35. CALCIUM GLUCONATE [Concomitant]
  36. NOVORAPID [Concomitant]
     Indication: HYPERGLYCAEMIA
  37. ELECTROLYTE SOLUTIONS [Concomitant]
     Indication: FLUID REPLACEMENT
  38. DUROGESIC [Concomitant]
     Indication: ANALGESIC THERAPY
     Dosage: UNK
     Dates: start: 20111111, end: 20111226
  39. HEXAMIDINE [Concomitant]
     Dosage: 100 ML, UNK
     Dates: start: 20111115, end: 20111121
  40. ACYCLOVIR                          /00587301/ [Concomitant]
     Dosage: 5 G, UNK
     Dates: start: 20111128, end: 20111128
  41. ZIPAN                              /00033002/ [Concomitant]
     Dosage: 50 MG, UNK
     Dates: start: 20111127, end: 20111203
  42. ZIPAN                              /00033002/ [Concomitant]
     Dosage: 50 MG, UNK
     Route: 042
     Dates: start: 20111204, end: 20111206
  43. KETOCONAZOLE [Concomitant]
     Indication: HERPES ZOSTER
     Dosage: UNK
     Dates: start: 20111207, end: 20111226

REACTIONS (21)
  - Pneumonia [Fatal]
  - Acidosis [Recovered/Resolved]
  - Pulmonary oedema [Not Recovered/Not Resolved]
  - Septic shock [Not Recovered/Not Resolved]
  - Nausea [Recovered/Resolved]
  - Palpitations [Recovered/Resolved]
  - Back pain [Not Recovered/Not Resolved]
  - Leukocytosis [Not Recovered/Not Resolved]
  - Constipation [Recovered/Resolved]
  - Hyperkalaemia [Recovered/Resolved]
  - Dyspnoea [Not Recovered/Not Resolved]
  - Pain [Not Recovered/Not Resolved]
  - Decreased appetite [Not Recovered/Not Resolved]
  - Arthralgia [Not Recovered/Not Resolved]
  - Pelvic pain [Not Recovered/Not Resolved]
  - Trochanteric syndrome [Not Recovered/Not Resolved]
  - Dysuria [Not Recovered/Not Resolved]
  - Diarrhoea [Recovered/Resolved]
  - Spinal column injury [Not Recovered/Not Resolved]
  - Dyskinesia [Recovered/Resolved]
  - Hepatic congestion [Not Recovered/Not Resolved]
